FAERS Safety Report 8070524-7 (Version None)
Quarter: 2012Q1

REPORT INFORMATION
  Report Type: 
  Country: None (occurrence: None)
  Receive Date: 20120125
  Receipt Date: 20120117
  Transmission Date: 20120608
  Serious: Yes (Other)
  Sender: FDA-Public Use
  Company Number: NZ-ABBOTT-11P-118-0868291-00

PATIENT
  Sex: Male

DRUGS (3)
  1. HUMIRA [Suspect]
     Indication: PSORIATIC ARTHROPATHY
     Dates: start: 20091001
  2. STEROIDS [Concomitant]
     Indication: PRODUCT USED FOR UNKNOWN INDICATION
  3. PREDNISONE [Concomitant]
     Indication: PRODUCT USED FOR UNKNOWN INDICATION

REACTIONS (9)
  - ANGIOTENSIN CONVERTING ENZYME INCREASED [None]
  - LIVER FUNCTION TEST ABNORMAL [None]
  - GRANULOMA [None]
  - GRANULOMATOUS LIVER DISEASE [None]
  - LIVER SARCOIDOSIS [None]
  - HEPATIC STEATOSIS [None]
  - EOSINOPHIL MORPHOLOGY ABNORMAL [None]
  - CHRONIC HEPATITIS [None]
  - HEPATIC CIRRHOSIS [None]
